FAERS Safety Report 7204960-5 (Version None)
Quarter: 2010Q4

REPORT INFORMATION
  Report Type: 
  Country: None (occurrence: None)
  Receive Date: 20101230
  Receipt Date: 20101123
  Transmission Date: 20110411
  Serious: Yes (Death, Other)
  Sender: FDA-Public Use
  Company Number: US-BAXTER-2010BH003416

PATIENT
  Age: 67 Year
  Sex: Female
  Weight: 71 kg

DRUGS (42)
  1. HEPARIN SODIUM INJECTION [Suspect]
     Indication: CATHETERISATION CARDIAC
     Route: 042
     Dates: start: 20071214
  2. HEPARIN SODIUM INJECTION [Suspect]
     Indication: DEEP VEIN THROMBOSIS
     Route: 042
     Dates: start: 20071214
  3. HEPARIN SODIUM INJECTION [Suspect]
     Indication: CENTRAL VENOUS CATHETERISATION
     Route: 042
     Dates: start: 20071214
  4. HEPARIN SODIUM INJECTION [Suspect]
     Indication: VENA CAVA FILTER INSERTION
     Route: 042
     Dates: start: 20071214
  5. HEPARIN SODIUM INJECTION [Suspect]
     Route: 040
     Dates: start: 20080110
  6. HEPARIN SODIUM INJECTION [Suspect]
     Route: 040
     Dates: start: 20080110
  7. HEPARIN SODIUM INJECTION [Suspect]
     Route: 040
     Dates: start: 20080110
  8. HEPARIN SODIUM INJECTION [Suspect]
     Route: 040
     Dates: start: 20080110
  9. HEPARIN SODIUM INJECTION [Suspect]
     Route: 042
     Dates: start: 20080111
  10. HEPARIN SODIUM INJECTION [Suspect]
     Route: 042
     Dates: start: 20080111
  11. HEPARIN SODIUM INJECTION [Suspect]
     Route: 042
     Dates: start: 20080111
  12. HEPARIN SODIUM INJECTION [Suspect]
     Route: 042
     Dates: start: 20080111
  13. HEPARIN SODIUM INJECTION [Suspect]
     Route: 042
     Dates: start: 20080111
  14. HEPARIN SODIUM INJECTION [Suspect]
     Route: 042
     Dates: start: 20080111
  15. HEPARIN SODIUM INJECTION [Suspect]
     Route: 042
     Dates: start: 20080111
  16. HEPARIN SODIUM INJECTION [Suspect]
     Route: 042
     Dates: start: 20080111
  17. HEPARIN SODIUM 5,000 UNITS IN DEXTROSE 5% [Suspect]
     Indication: DEEP VEIN THROMBOSIS
     Route: 041
     Dates: start: 20080110, end: 20080110
  18. HEPARIN SODIUM 5,000 UNITS IN DEXTROSE 5% [Suspect]
     Route: 041
     Dates: start: 20080110, end: 20080114
  19. CARDIZEM CD [Concomitant]
     Indication: PRODUCT USED FOR UNKNOWN INDICATION
     Route: 065
  20. HYDROCHLOROTHIAZIDE [Concomitant]
     Indication: PRODUCT USED FOR UNKNOWN INDICATION
     Route: 065
  21. LISINOPRIL [Concomitant]
     Indication: PRODUCT USED FOR UNKNOWN INDICATION
     Route: 065
  22. ATROPINE [Concomitant]
     Indication: PRODUCT USED FOR UNKNOWN INDICATION
     Route: 065
  23. BACITRACIN [Concomitant]
     Indication: PRODUCT USED FOR UNKNOWN INDICATION
     Route: 065
  24. BENADRYL [Concomitant]
     Indication: PRODUCT USED FOR UNKNOWN INDICATION
     Route: 065
  25. CLEOCIN [Concomitant]
     Indication: PRODUCT USED FOR UNKNOWN INDICATION
     Route: 065
  26. FENTANYL-100 [Concomitant]
     Indication: PRODUCT USED FOR UNKNOWN INDICATION
     Route: 065
  27. INTEGRILIN [Concomitant]
     Indication: PRODUCT USED FOR UNKNOWN INDICATION
     Route: 065
  28. LOVENOX [Concomitant]
     Indication: PRODUCT USED FOR UNKNOWN INDICATION
     Route: 065
  29. METOPROLOL [Concomitant]
     Indication: PRODUCT USED FOR UNKNOWN INDICATION
     Route: 065
  30. MORPHINE [Concomitant]
     Indication: PAIN
     Route: 065
  31. NOVOLOG [Concomitant]
     Indication: PRODUCT USED FOR UNKNOWN INDICATION
     Route: 065
  32. NITROGLYCERIN [Concomitant]
     Indication: PRODUCT USED FOR UNKNOWN INDICATION
     Route: 065
  33. ASPIRIN [Concomitant]
     Indication: PRODUCT USED FOR UNKNOWN INDICATION
     Route: 065
  34. PHENERGAN [Concomitant]
     Indication: PRODUCT USED FOR UNKNOWN INDICATION
     Route: 065
  35. PLAVIX [Concomitant]
     Indication: PRODUCT USED FOR UNKNOWN INDICATION
     Route: 065
  36. PANTOPRAZOLE [Concomitant]
     Indication: PRODUCT USED FOR UNKNOWN INDICATION
     Route: 065
  37. VALIUM [Concomitant]
     Indication: PRODUCT USED FOR UNKNOWN INDICATION
     Route: 065
  38. XANAX [Concomitant]
     Indication: PRODUCT USED FOR UNKNOWN INDICATION
     Route: 065
  39. ZOFRAN [Concomitant]
     Indication: PAIN
     Route: 065
  40. PREDNISONE [Concomitant]
     Indication: PRODUCT USED FOR UNKNOWN INDICATION
     Route: 048
  41. K-DUR [Concomitant]
     Indication: PRODUCT USED FOR UNKNOWN INDICATION
     Route: 048
  42. COREG [Concomitant]
     Indication: PRODUCT USED FOR UNKNOWN INDICATION
     Route: 048

REACTIONS (13)
  - ABDOMINAL PAIN [None]
  - CORONARY ARTERY DISEASE [None]
  - DEEP VEIN THROMBOSIS [None]
  - HYPERKALAEMIA [None]
  - HYPOTENSION [None]
  - ISCHAEMIC NEUROPATHY [None]
  - MYOCARDIAL INFARCTION [None]
  - NAUSEA [None]
  - PELVIC HAEMATOMA [None]
  - POST PROCEDURAL HAEMATOMA [None]
  - PYREXIA [None]
  - RENAL FAILURE [None]
  - VOMITING [None]
